FAERS Safety Report 17482044 (Version 2)
Quarter: 2020Q1

REPORT INFORMATION
  Report Type: Report from Study
  Country: None (occurrence: BE)
  Receive Date: 20200302
  Receipt Date: 20200313
  Transmission Date: 20200409
  Serious: Yes (Hospitalization)
  Sender: FDA-Public Use
  Company Number: BE-ABBVIE-20K-013-3294466-00

PATIENT
  Age: 90 Year
  Sex: Female
  Weight: 50 kg

DRUGS (18)
  1. AMLOR [Concomitant]
     Active Substance: AMLODIPINE BESYLATE
     Indication: HYPERTENSION
     Route: 048
     Dates: start: 20170825
  2. MOVICOL [Concomitant]
     Active Substance: POLYETHYLENE GLYCOL 3350\POTASSIUM CHLORIDE\SODIUM BICARBONATE\SODIUM CHLORIDE
     Indication: CONSTIPATION
     Route: 048
     Dates: start: 20171115
  3. CIRCADIN [Concomitant]
     Active Substance: MELATONIN
     Indication: SLEEP DISORDER THERAPY
     Route: 048
     Dates: start: 201903
  4. AZILECT [Concomitant]
     Active Substance: RASAGILINE MESYLATE
     Indication: PARKINSON^S DISEASE
     Route: 048
     Dates: start: 20090401
  5. QUETIAPINE TEVA [Concomitant]
     Active Substance: QUETIAPINE
     Indication: DEPRESSION
     Route: 048
     Dates: start: 20170822
  6. PLAVIX [Concomitant]
     Active Substance: CLOPIDOGREL BISULFATE
     Indication: ANTICOAGULANT THERAPY
     Route: 048
     Dates: start: 200007
  7. PANTOMED [Concomitant]
     Indication: PROPHYLAXIS
     Route: 048
     Dates: start: 2011
  8. RIOPAN [Concomitant]
     Indication: PROPHYLAXIS
     Route: 048
     Dates: start: 20161220
  9. DUODOPA [Suspect]
     Active Substance: CARBIDOPA\LEVODOPA
     Dosage: MD: 3 ML, CD: 1.7 ML/H, ED: 1.5 ML, ND: 1 ML/H 2 EXTRA DOSE PER DAY, 24 HRS ADMINISTRATION
     Route: 050
     Dates: start: 20190915
  10. SYSTANE (HYPROMELLOSE 2910 (4000 MPA.S)) [Concomitant]
     Active Substance: HYPROMELLOSE 2910 (4000 MPA.S)
     Indication: DRY EYE
     Route: 047
     Dates: start: 2017
  11. DIAZEPAM TEVA [Concomitant]
     Active Substance: DIAZEPAM
     Indication: ANXIETY
     Route: 048
     Dates: start: 2017
  12. DOMPERIDONE [Concomitant]
     Active Substance: DOMPERIDONE
     Indication: NAUSEA
     Route: 048
     Dates: start: 20180429
  13. DAFALGAN [Concomitant]
     Active Substance: ACETAMINOPHEN
     Indication: PAIN
     Route: 048
  14. SERENASE [Concomitant]
     Indication: PSYCHOTIC DISORDER
     Route: 048
     Dates: start: 2000
  15. DUODOPA [Suspect]
     Active Substance: CARBIDOPA\LEVODOPA
     Indication: PARKINSON^S DISEASE
     Dosage: MD: 6 ML CD: 2 ML/H ED: 1.5 ML EXTRA DOSE 2 PER DAY DURATION 16 HRS
     Route: 050
     Dates: start: 20161213, end: 20161216
  16. D-VITAL [Concomitant]
     Indication: OSTEOPOROSIS
     Route: 048
     Dates: start: 2017
  17. TOBREX [Concomitant]
     Active Substance: TOBRAMYCIN
     Indication: DRY EYE
     Route: 047
     Dates: start: 2017
  18. PROLOPA HBS [Concomitant]
     Active Substance: BENSERAZIDE\LEVODOPA
     Indication: PARKINSON^S DISEASE
     Route: 048
     Dates: start: 20170822

REACTIONS (1)
  - Hallucination, visual [Recovered/Resolved]

NARRATIVE: CASE EVENT DATE: 20200225
